FAERS Safety Report 8506112 (Version 2)
Quarter: 2013Q4

REPORT INFORMATION
  Report Type: Spontaneous
  Country: CA (occurrence: CA)
  Receive Date: 20120412
  Receipt Date: 20131203
  Transmission Date: 20140711
  Serious: Yes (Other)
  Sender: FDA-Public Use
  Company Number: CA-ASTRAZENECA-2012SE15695

PATIENT
  Age: 59 Year
  Sex: 0

DRUGS (5)
  1. CRESTOR [Suspect]
     Route: 048
  2. VITAMIN [Concomitant]
  3. ADVAIR DISKUS [Concomitant]
     Indication: ASTHMA
  4. RABEPRAZOLE [Concomitant]
     Indication: GASTROOESOPHAGEAL REFLUX DISEASE
  5. SEIZURE MEDS [Concomitant]

REACTIONS (12)
  - Convulsion [Unknown]
  - Gastrooesophageal reflux disease [Unknown]
  - Pollakiuria [Unknown]
  - Tremor [Unknown]
  - Nasopharyngitis [Unknown]
  - Oropharyngeal pain [Unknown]
  - Migraine [Unknown]
  - Chest discomfort [Unknown]
  - Aphonia [Unknown]
  - Headache [Unknown]
  - Insomnia [Unknown]
  - Dysphonia [Unknown]
